FAERS Safety Report 15480417 (Version 1)
Quarter: 2018Q4

REPORT INFORMATION
  Report Type: Spontaneous
  Country: CN (occurrence: CN)
  Receive Date: 20181009
  Receipt Date: 20181009
  Transmission Date: 20190205
  Serious: Yes (Other)
  Sender: FDA-Public Use
  Company Number: CN-BAXTER-2018BAX024914

PATIENT
  Age: 53 Year
  Sex: Female
  Weight: 63 kg

DRUGS (2)
  1. TRASTUZUMAB. [Suspect]
     Active Substance: TRASTUZUMAB
     Indication: BREAST CANCER
     Route: 041
     Dates: start: 20180727, end: 20180727
  2. 0.9% SODIUM CHLORIDE INJECTION [Suspect]
     Active Substance: SODIUM CHLORIDE
     Indication: MEDICATION DILUTION
     Route: 041
     Dates: start: 20180727, end: 20180727

REACTIONS (3)
  - Myalgia [Recovering/Resolving]
  - Chills [Recovering/Resolving]
  - Pyrexia [Recovering/Resolving]

NARRATIVE: CASE EVENT DATE: 20180727
